FAERS Safety Report 23924782 (Version 1)
Quarter: 2024Q2

REPORT INFORMATION
  Report Type: Spontaneous
  Country: UA (occurrence: UA)
  Receive Date: 20240531
  Receipt Date: 20240531
  Transmission Date: 20240716
  Serious: Yes (Death)
  Sender: FDA-Public Use
  Company Number: UA-MYLANLABS-2024M1049193

PATIENT
  Age: 36 Year
  Sex: Male

DRUGS (4)
  1. PRETOMANID [Suspect]
     Active Substance: PRETOMANID
     Indication: Pulmonary tuberculosis
     Dosage: 0.2 GRAM, QD
     Route: 048
     Dates: start: 20240416, end: 20240507
  2. LIZOMAC [Concomitant]
     Dosage: 0.3 GRAM, QD
     Route: 065
     Dates: start: 20240416
  3. MOXIFLOXACIN HYDROCHLORIDE [Concomitant]
     Active Substance: MOXIFLOXACIN HYDROCHLORIDE\MOXIFLOXACIN HYDROCHLORIDE MONOHYDRATE
     Dosage: 0.4 GRAM, QD
     Route: 065
     Dates: start: 20240416
  4. SIRTURO [Concomitant]
     Active Substance: BEDAQUILINE FUMARATE
     Dosage: 0.2 GRAM, 3XW (3/7 DAYS)
     Route: 065
     Dates: start: 20240416

REACTIONS (1)
  - Death [Fatal]

NARRATIVE: CASE EVENT DATE: 20240507
